FAERS Safety Report 24557803 (Version 1)
Quarter: 2024Q4

REPORT INFORMATION
  Report Type: Spontaneous
  Country: US (occurrence: US)
  Receive Date: 20241028
  Receipt Date: 20241028
  Transmission Date: 20250115
  Serious: No
  Sender: SUNOVION
  Company Number: US-SMPA-2024SPA004132AA

PATIENT

DRUGS (4)
  1. MYFEMBREE [Suspect]
     Active Substance: ESTRADIOL HEMIHYDRATE\NORETHINDRONE ACETATE\RELUGOLIX
     Indication: Uterine leiomyoma
     Dosage: 0.5 MG, QD
     Route: 048
     Dates: start: 20240413, end: 20241006
  2. IRON [Concomitant]
     Active Substance: IRON
     Indication: Vitamin supplementation
     Dosage: UNK
     Route: 065
  3. VITAMIN D [Concomitant]
     Active Substance: VITAMIN D NOS
     Indication: Vitamin supplementation
     Dosage: UNK
     Route: 065
  4. PROBIOTICS NOS [Concomitant]
     Active Substance: PROBIOTICS NOS
     Indication: Vitamin supplementation
     Dosage: UNK
     Route: 065

REACTIONS (8)
  - Vulvovaginal pruritus [Unknown]
  - Bacterial vaginosis [Unknown]
  - Insomnia [Unknown]
  - Vaginal flatulence [Unknown]
  - Confusional state [Unknown]
  - Vulvovaginal dryness [Unknown]
  - Hot flush [Unknown]
  - Nausea [Unknown]
